FAERS Safety Report 25985010 (Version 1)
Quarter: 2025Q4

REPORT INFORMATION
  Report Type: Report from Study
  Country: CA (occurrence: CA)
  Receive Date: 20251031
  Receipt Date: 20251031
  Transmission Date: 20260117
  Serious: Yes (Other)
  Sender: ABBVIE
  Company Number: CA-ABBVIE-6523084

PATIENT
  Age: 44 Year
  Sex: Male

DRUGS (1)
  1. SKYRIZI [Suspect]
     Active Substance: RISANKIZUMAB-RZAA
     Indication: Crohn^s disease
     Dosage: LAST DOSE DATE: 23 SEP 2025
     Route: 058

REACTIONS (1)
  - Intestinal resection [Recovered/Resolved]

NARRATIVE: CASE EVENT DATE: 20250101
